FAERS Safety Report 23581381 (Version 2)
Quarter: 2024Q1

REPORT INFORMATION
  Report Type: Spontaneous
  Country: US (occurrence: US)
  Receive Date: 20240229
  Receipt Date: 20240311
  Transmission Date: 20240409
  Serious: Yes (Other)
  Sender: FDA-Public Use
  Company Number: US-PFIZER INC-PV202400027878

PATIENT
  Age: 37 Year
  Sex: Female

DRUGS (8)
  1. ESTROGENS, CONJUGATED [Suspect]
     Active Substance: ESTROGENS, CONJUGATED
     Indication: Erythema
     Dosage: 100 UG (0.1 ML)
     Route: 023
  2. ESTROGENS, CONJUGATED [Suspect]
     Active Substance: ESTROGENS, CONJUGATED
     Indication: Urticaria
  3. MEDROXYPROGESTERONE [Concomitant]
     Active Substance: MEDROXYPROGESTERONE
     Indication: Erythema
     Dosage: 100 UG
     Route: 023
  4. MEDROXYPROGESTERONE [Concomitant]
     Active Substance: MEDROXYPROGESTERONE
     Indication: Urticaria
  5. HISTAMINE [Concomitant]
     Active Substance: HISTAMINE
     Indication: Erythema
     Dosage: UNK
     Route: 023
  6. HISTAMINE [Concomitant]
     Active Substance: HISTAMINE
     Indication: Urticaria
  7. SODIUM CHLORIDE [Concomitant]
     Active Substance: SODIUM CHLORIDE
     Indication: Erythema
     Dosage: UNK
     Route: 023
  8. SODIUM CHLORIDE [Concomitant]
     Active Substance: SODIUM CHLORIDE
     Indication: Urticaria

REACTIONS (3)
  - Dermatitis [Recovered/Resolved]
  - Off label use [Unknown]
  - Off label use [Unknown]
